FAERS Safety Report 5619437-8 (Version None)
Quarter: 2008Q1

REPORT INFORMATION
  Report Type: 
  Country: None (occurrence: None)
  Receive Date: 20080109
  Receipt Date: 20070330
  Transmission Date: 20080703
  Serious: Yes (Other)
  Sender: FDA-Public Use
  Company Number: WAES 0704USA00192

PATIENT
  Age: 45 Year
  Sex: Female

DRUGS (2)
  1. ZETIA [Suspect]
     Indication: BLOOD CHOLESTEROL INCREASED
     Dosage: 10 MG, DAILY, PO
     Route: 048
     Dates: start: 20070220, end: 20070320
  2. ZETIA [Suspect]
     Indication: BLOOD CHOLESTEROL INCREASED
     Dosage: 10 MG, DAILY, PO
     Route: 048
     Dates: start: 20070301, end: 20070330

REACTIONS (1)
  - PANCREATITIS [None]
